FAERS Safety Report 17939247 (Version 1)
Quarter: 2020Q2

REPORT INFORMATION
  Report Type: Spontaneous
  Country: IT (occurrence: IT)
  Receive Date: 20200625
  Receipt Date: 20200625
  Transmission Date: 20200714
  Serious: Yes (Hospitalization, Other)
  Sender: FDA-Public Use
  Company Number: IT-SUN PHARMACEUTICAL INDUSTRIES LTD-2020RR-251171

PATIENT
  Age: 17 Year
  Sex: Male
  Weight: 65 kg

DRUGS (3)
  1. IRINOTECAN KABI 20 MG/ML CONCENTRATO PER SOLUZIONE PER INFUSIONE [Concomitant]
     Active Substance: IRINOTECAN
     Indication: CHEMOTHERAPY
     Dosage: 90 MILLIGRAM
     Route: 042
     Dates: start: 20200428, end: 20200502
  2. CEFIXORAL [Concomitant]
     Active Substance: CEFIXIME
     Indication: PROPHYLAXIS AGAINST DIARRHOEA
     Dosage: ()
     Route: 065
  3. TEMOZOLOMIDE SUN [Suspect]
     Active Substance: TEMOZOLOMIDE
     Indication: EWING^S SARCOMA RECURRENT
     Dosage: 180 MILLIGRAMS, CYCLICAL
     Route: 048
     Dates: start: 20200428, end: 20200502

REACTIONS (1)
  - Generalised tonic-clonic seizure [Recovered/Resolved]

NARRATIVE: CASE EVENT DATE: 20200507
